FAERS Safety Report 8212844-9 (Version None)
Quarter: 2012Q1

REPORT INFORMATION
  Report Type: 
  Country: None (occurrence: None)
  Receive Date: 20120315
  Receipt Date: 20120313
  Transmission Date: 20120608
  Serious: Yes (Other)
  Sender: FDA-Public Use
  Company Number: US-BAYER-2012-025081

PATIENT
  Age: 45 Year
  Sex: Male

DRUGS (7)
  1. BYSTOLIC [Concomitant]
  2. PRAVASTATIN [Concomitant]
  3. ALLOPURINOL [Concomitant]
  4. FENOFIBRATE [Concomitant]
  5. ASPIRIN [Concomitant]
  6. SERTRALINE HYDROCHLORIDE [Concomitant]
  7. LEVITRA [Suspect]
     Indication: ERECTILE DYSFUNCTION
     Dosage: 10 MG, ONCE
     Route: 048
     Dates: start: 20110101, end: 20110101

REACTIONS (2)
  - DEAFNESS [None]
  - ERECTILE DYSFUNCTION [None]
